FAERS Safety Report 6229895-6 (Version None)
Quarter: 2009Q2

REPORT INFORMATION
  Report Type: 
  Country: None (occurrence: None)
  Receive Date: 20090615
  Receipt Date: 20090609
  Transmission Date: 20091009
  Serious: Yes (Hospitalization, Other)
  Sender: FDA-Public Use
  Company Number: US-ELI_LILLY_AND_COMPANY-US200906002088

PATIENT
  Sex: Female

DRUGS (7)
  1. FORTEO [Suspect]
     Dosage: 20 UG, DAILY (1/D)
  2. PREDNISONE [Concomitant]
     Dosage: 5 MG, UNK
  3. WELCHOL [Concomitant]
  4. AVAPRO [Concomitant]
  5. WARFARIN SODIUM [Concomitant]
     Dosage: 3 MG, UNK
  6. WARFARIN SODIUM [Concomitant]
     Dosage: 1.5 MG, 2/W
  7. ATENOLOL [Concomitant]

REACTIONS (2)
  - FEELING HOT [None]
  - MYOCARDIAL INFARCTION [None]
